FAERS Safety Report 10538586 (Version 4)
Quarter: 2015Q1

REPORT INFORMATION
  Report Type: Spontaneous
  Country: BR (occurrence: BR)
  Receive Date: 20141023
  Receipt Date: 20150122
  Transmission Date: 20150720
  Serious: Yes (Death, Hospitalization, Other)
  Sender: FDA-Public Use
  Company Number: BR-PFIZER INC-2014281708

PATIENT
  Age: 68 Year
  Sex: Female
  Weight: 45 kg

DRUGS (8)
  1. PURAN [Concomitant]
     Active Substance: LEVOTHYROXINE SODIUM
     Dosage: 75 MG, 1X/DAY (IN THE MORNING, FASTING)
  2. MORPHINE [Concomitant]
     Active Substance: MORPHINE
  3. CALCIUM [Concomitant]
     Active Substance: CALCIUM
     Dosage: UNK
     Route: 048
  4. PARACETAMOL [Concomitant]
     Active Substance: ACETAMINOPHEN
     Dosage: UNK
  5. INSULIN [Concomitant]
     Active Substance: INSULIN NOS
     Dosage: UNK
  6. FLUDROCORTISONE [Suspect]
     Active Substance: FLUDROCORTISONE
     Indication: RENAL DISORDER
     Dosage: 5 MG, DAILY
  7. SUTENT [Suspect]
     Active Substance: SUNITINIB MALATE
     Indication: METASTATIC RENAL CELL CARCINOMA
     Dosage: 50 MG, CYCLIC (1 PER 1), 17 DAYS IN USED AND STOPPING FOR 7 DAYS
     Route: 048
     Dates: start: 201204, end: 201411
  8. PREDNISONE. [Concomitant]
     Active Substance: PREDNISONE
     Dosage: UNK

REACTIONS (17)
  - Blister [Recovering/Resolving]
  - Haematuria [Not Recovered/Not Resolved]
  - Movement disorder [Unknown]
  - Asthenia [Not Recovered/Not Resolved]
  - Multi-organ failure [Fatal]
  - Peripheral swelling [Unknown]
  - Diabetic coma [Unknown]
  - Kidney infection [Not Recovered/Not Resolved]
  - Wound [Not Recovered/Not Resolved]
  - Dizziness [Unknown]
  - Syncope [Unknown]
  - Anaemia [Not Recovered/Not Resolved]
  - Bedridden [Not Recovered/Not Resolved]
  - Local swelling [Not Recovered/Not Resolved]
  - Metastatic renal cell carcinoma [Fatal]
  - Pneumonia [Fatal]
  - Disease progression [Fatal]

NARRATIVE: CASE EVENT DATE: 2014
